FAERS Safety Report 9184632 (Version 4)
Quarter: 2014Q1

REPORT INFORMATION
  Report Type: Spontaneous
  Country: DE (occurrence: DE)
  Receive Date: 20130324
  Receipt Date: 20140212
  Transmission Date: 20141002
  Serious: Yes (Death, Hospitalization)
  Sender: FDA-Public Use
  Company Number: DE-ROCHE-1205029

PATIENT
  Sex: Male
  Weight: 61 kg

DRUGS (8)
  1. ROACTEMRA [Suspect]
     Indication: RHEUMATOID ARTHRITIS
     Dosage: LAST DOSE PRIOR TO SAE ON 04/FEB/2013
     Route: 042
     Dates: start: 20111215, end: 20130204
  2. PREDNISONE [Concomitant]
     Indication: RHEUMATOID ARTHRITIS
     Route: 048
     Dates: start: 20111212
  3. METHOTREXATE [Concomitant]
     Indication: RHEUMATOID ARTHRITIS
     Route: 058
     Dates: start: 20111212
  4. METHOTREXATE [Concomitant]
     Route: 065
     Dates: start: 200208
  5. FOLIC ACID [Concomitant]
     Indication: PROPHYLAXIS
     Route: 048
     Dates: start: 20111212
  6. FOLIC ACID [Concomitant]
     Route: 065
     Dates: start: 200208
  7. ALENDRONIC ACID [Concomitant]
     Indication: OSTEOPOROSIS PROPHYLAXIS
     Route: 048
     Dates: start: 20111212
  8. ALENDRONIC ACID [Concomitant]
     Route: 065
     Dates: start: 200208

REACTIONS (9)
  - Pulmonary embolism [Fatal]
  - Pancreatic neoplasm [Fatal]
  - General physical health deterioration [Fatal]
  - Septic shock [Fatal]
  - Peritonitis bacterial [Fatal]
  - Ascites [Fatal]
  - Renal failure [Fatal]
  - Syncope [Recovered/Resolved]
  - Portal vein thrombosis [Unknown]
